FAERS Safety Report 16627060 (Version 3)
Quarter: 2019Q4

REPORT INFORMATION
  Report Type: Spontaneous
  Country: US (occurrence: US)
  Receive Date: 20190724
  Receipt Date: 20191204
  Transmission Date: 20200122
  Serious: No
  Sender: FDA-Public Use
  Company Number: US-SA-2019SA199554

PATIENT
  Age: 49 Year
  Sex: Female
  Weight: 106.58 kg

DRUGS (4)
  1. BLACK COHOSH [CIMICIFUGA RACEMOSA ROOT] [Concomitant]
     Dosage: UNK
  2. DUPIXENT [Suspect]
     Active Substance: DUPILUMAB
     Indication: DERMATITIS ATOPIC
     Dosage: 300 MG, QOW
     Route: 058
     Dates: start: 20190228, end: 2019
  3. ESTROGEL [Concomitant]
     Active Substance: ESTRADIOL
     Dosage: UNK
  4. GINKGO BILOBA [Concomitant]
     Active Substance: GINKGO
     Dosage: UNK

REACTIONS (2)
  - Dermatitis atopic [Not Recovered/Not Resolved]
  - Injection site pain [Not Recovered/Not Resolved]

NARRATIVE: CASE EVENT DATE: 2019
